FAERS Safety Report 14531007 (Version 1)
Quarter: 2018Q1

REPORT INFORMATION
  Report Type: Spontaneous
  Country: US (occurrence: US)
  Receive Date: 20180213
  Receipt Date: 20180213
  Transmission Date: 20180509
  Serious: Yes (Life-Threatening)
  Sender: FDA-Public Use
  Company Number: None

PATIENT
  Sex: Male
  Weight: 109.8 kg

DRUGS (4)
  1. LOW DOSE ASPIRIN [Concomitant]
     Active Substance: ASPIRIN
  2. OSELTAMIVIR [Suspect]
     Active Substance: OSELTAMIVIR
     Indication: INFLUENZA LIKE ILLNESS
     Dosage: ?          QUANTITY:10 TABLET(S);?
     Route: 048
     Dates: start: 20180208, end: 20180212
  3. CETIRIZINE HYDROCHLORIDE. [Concomitant]
     Active Substance: CETIRIZINE HYDROCHLORIDE
  4. MEN^S DAILY MULTIVITAMIN [Concomitant]

REACTIONS (7)
  - Emotional distress [None]
  - Feeling of despair [None]
  - Confusional state [None]
  - Suicidal ideation [None]
  - Depression [None]
  - Inappropriate schedule of drug administration [None]
  - Nausea [None]

NARRATIVE: CASE EVENT DATE: 20180211
